FAERS Safety Report 4357280-0 (Version None)
Quarter: 2004Q2

REPORT INFORMATION
  Report Type: 
  Country: None (occurrence: None)
  Receive Date: 20040513
  Receipt Date: 20040503
  Transmission Date: 20050107
  Serious: Yes (Other)
  Sender: FDA-Public Use
  Company Number: PHNU2004DE01702

PATIENT
  Age: 80 Year
  Sex: Female

DRUGS (2)
  1. DIOVAN [Suspect]
     Dosage: 80 MG, BID
     Route: 048
     Dates: start: 20040429, end: 20040502
  2. CO-DIOVAN [Concomitant]
     Dates: start: 20040401, end: 20040428

REACTIONS (1)
  - VASCULITIS [None]
